FAERS Safety Report 24526972 (Version 2)
Quarter: 2025Q2

REPORT INFORMATION
  Report Type: Spontaneous
  Country: FR (occurrence: FR)
  Receive Date: 20241021
  Receipt Date: 20250418
  Transmission Date: 20250717
  Serious: Yes (Life-Threatening)
  Sender: ACCORD
  Company Number: None

PATIENT
  Age: 27 Year
  Sex: Male
  Weight: 54.5 kg

DRUGS (10)
  1. CLOZAPINE [Suspect]
     Active Substance: CLOZAPINE
     Indication: Schizophrenia
     Dates: start: 20240803, end: 20240825
  2. ATROPINE [Suspect]
     Active Substance: ATROPINE
     Indication: Product used for unknown indication
     Dosage: 2 DROPS 2/DAY
     Dates: end: 20240825
  3. TRIMEPRAZINE [Suspect]
     Active Substance: TRIMEPRAZINE
     Indication: Insomnia
     Dates: end: 20240825
  4. VALIUM [Suspect]
     Active Substance: DIAZEPAM
     Indication: Schizophrenia
     Dosage: 30 DROPS 4/DAY, 1 PERCENT, ORAL SOLUTION IN DROPS
     Dates: end: 20240825
  5. LOXAPINE [Suspect]
     Active Substance: LOXAPINE
     Indication: Schizophrenia
     Dosage: 1DF 4/D,  ORAL SOLUTION
     Dates: end: 20240825
  6. PANTOPRAZOLE [Suspect]
     Active Substance: PANTOPRAZOLE
     Indication: Product used for unknown indication
     Dates: end: 20240825
  7. ZOPICLONE [Suspect]
     Active Substance: ZOPICLONE
     Indication: Insomnia
     Dates: end: 20240825
  8. TROPATEPINE HYDROCHLORIDE [Suspect]
     Active Substance: TROPATEPINE HYDROCHLORIDE
     Indication: Drug toxicity prophylaxis
     Dosage: STRENGTH: 10 MG
     Dates: end: 20240825
  9. VALPROATE SODIUM [Suspect]
     Active Substance: VALPROATE SODIUM
     Indication: Schizophrenia
     Dosage: STRENGTH: 250 MG
     Dates: end: 20240825
  10. HALDOL [Suspect]
     Active Substance: HALOPERIDOL
     Indication: Schizophrenia
     Dosage: 250 DROPS /DAY,  2 MG/ML, ORAL SOLUTION IN DROPS
     Dates: end: 20240825

REACTIONS (3)
  - Intestinal obstruction [Recovered/Resolved with Sequelae]
  - Septic shock [Recovered/Resolved]
  - Large intestine perforation [Recovered/Resolved with Sequelae]

NARRATIVE: CASE EVENT DATE: 20240824
